FAERS Safety Report 5697946-3 (Version None)
Quarter: 2008Q2

REPORT INFORMATION
  Report Type: 
  Country: None (occurrence: None)
  Receive Date: 20080404
  Receipt Date: 20080404
  Transmission Date: 20081010
  Serious: Yes (Life-Threatening, Hospitalization)
  Sender: FDA-Public Use
  Company Number: None

PATIENT
  Age: 40 Year
  Sex: Female
  Weight: 88 kg

DRUGS (1)
  1. CEPHALEXIN [Suspect]
     Indication: STAPHYLOCOCCAL INFECTION
     Dosage: 500MG  QID PO
     Route: 048
     Dates: start: 20080325, end: 20080327

REACTIONS (6)
  - HYPERAESTHESIA [None]
  - PAIN [None]
  - RASH GENERALISED [None]
  - RASH PUSTULAR [None]
  - SKIN EXFOLIATION [None]
  - SUNBURN [None]
